FAERS Safety Report 24228034 (Version 2)
Quarter: 2024Q3

REPORT INFORMATION
  Report Type: Spontaneous
  Country: US (occurrence: US)
  Receive Date: 20240820
  Receipt Date: 20240905
  Transmission Date: 20241016
  Serious: Yes (Life-Threatening, Hospitalization)
  Sender: TEVA
  Company Number: US-TEVA-VS-3234190

PATIENT
  Age: 44 Year
  Sex: Male

DRUGS (4)
  1. MYCOPHENOLIC ACID [Suspect]
     Active Substance: MYCOPHENOLIC ACID
     Indication: Idiopathic inflammatory myopathy
     Route: 065
  2. METHYLPREDNISOLONE [Concomitant]
     Active Substance: METHYLPREDNISOLONE
     Indication: Idiopathic inflammatory myopathy
  3. PREDNISONE [Concomitant]
     Active Substance: PREDNISONE
     Indication: Idiopathic inflammatory myopathy
  4. IMMUNE GLOBULIN [Concomitant]
     Indication: Idiopathic inflammatory myopathy
     Route: 042

REACTIONS (1)
  - Drug ineffective [Unknown]
